FAERS Safety Report 4664534-7 (Version None)
Quarter: 2005Q2

REPORT INFORMATION
  Report Type: 
  Country: None (occurrence: None)
  Receive Date: 20050518
  Receipt Date: 20050509
  Transmission Date: 20051028
  Serious: Yes (Other)
  Sender: FDA-Public Use
  Company Number: PHEH2005US05303

PATIENT
  Age: 54 Year
  Sex: Female

DRUGS (1)
  1. SANDOSTATIN LAR [Suspect]
     Indication: CARCINOID SYNDROME
     Dosage: 20 MG, QMO
     Dates: start: 20020101

REACTIONS (4)
  - CARCINOID SYNDROME [None]
  - DIARRHOEA [None]
  - HOT FLUSH [None]
  - MEDICATION ERROR [None]
